FAERS Safety Report 22191664 (Version 1)
Quarter: 2023Q2

REPORT INFORMATION
  Report Type: Spontaneous
  Country: US (occurrence: None)
  Receive Date: 20230407
  Receipt Date: 20230407
  Transmission Date: 20230722
  Serious: Yes (Hospitalization)
  Sender: FDA-Public Use
  Company Number: None

PATIENT
  Age: 79 Year
  Sex: Male
  Weight: 80.4 kg

DRUGS (2)
  1. CEFTRIAXONE [Suspect]
     Active Substance: CEFTRIAXONE
     Indication: Pneumonia
     Dosage: 2 GM EVERY 24 HOURS INTRAVENOUS? ?
     Route: 042
     Dates: start: 20230404, end: 20230404
  2. Ceftriaxone 2 g/50 mL Duplex Bag [Concomitant]
     Dates: start: 20230404, end: 20230404

REACTIONS (2)
  - Pneumonia [None]
  - Anaphylactic reaction [None]

NARRATIVE: CASE EVENT DATE: 20230404
